FAERS Safety Report 25971330 (Version 1)
Quarter: 2025Q4

REPORT INFORMATION
  Report Type: Spontaneous
  Country: US (occurrence: US)
  Receive Date: 20251028
  Receipt Date: 20251028
  Transmission Date: 20260118
  Serious: Yes (Disabling)
  Sender: AIMMUNE
  Company Number: US-ZENPEP LLC-2025AIMT01071

PATIENT

DRUGS (2)
  1. ZENPEP [Suspect]
     Active Substance: PANCRELIPASE AMYLASE\PANCRELIPASE LIPASE\PANCRELIPASE PROTEASE
     Indication: Pancreatitis
     Dosage: 40,000 UNITS OF LIPASE 2 CAPSULES, 3X/DAY WITH MEALS AND 1 CAPSULE BEFORE SNACK
     Route: 048
     Dates: start: 202004
  2. ZENPEP [Suspect]
     Active Substance: PANCRELIPASE AMYLASE\PANCRELIPASE LIPASE\PANCRELIPASE PROTEASE
     Indication: Pancreas divisum
     Dosage: 40,000 UNITS OF LIPASE 2 CAPSULES, 3X/DAY WITH MEALS AND 1 CAPSULE BEFORE SNACK, ONCE, LAST DOSE PRI
     Route: 048

REACTIONS (2)
  - Back disorder [Unknown]
  - Inability to afford medication [Unknown]

NARRATIVE: CASE EVENT DATE: 20200101
